FAERS Safety Report 25856325 (Version 1)
Quarter: 2025Q3

REPORT INFORMATION
  Report Type: Spontaneous
  Country: GB (occurrence: GB)
  Receive Date: 20250928
  Receipt Date: 20250928
  Transmission Date: 20251020
  Serious: Yes (Other)
  Sender: TEVA
  Company Number: GB-MHRA-EMIS-2850-68801a36-72f5-4f50-8025-45592c5abe7e

PATIENT
  Age: 69 Year
  Sex: Male
  Weight: 97 kg

DRUGS (1)
  1. GABAPENTIN [Suspect]
     Active Substance: GABAPENTIN
     Indication: Product used for unknown indication
     Route: 065
     Dates: start: 20250818

REACTIONS (3)
  - Confusional state [Recovered/Resolved]
  - Intrusive thoughts [Recovered/Resolved]
  - Sleep disorder [Recovered/Resolved]
